FAERS Safety Report 4803935-0 (Version None)
Quarter: 2005Q3

REPORT INFORMATION
  Report Type: 
  Country: None (occurrence: None)
  Receive Date: 20050920
  Receipt Date: 20050511
  Transmission Date: 20060218
  Serious: No
  Sender: FDA-Public Use
  Company Number: US-YAMANOUCHI-YPA20050259

PATIENT
  Age: 56 Year
  Sex: Female

DRUGS (7)
  1. VESICARE [Suspect]
     Indication: INCONTINENCE
     Dosage: 5 MG QD PO
     Route: 048
     Dates: start: 20050401, end: 20050510
  2. LOPRESSOR [Concomitant]
  3. GLUCOSAMINE [Concomitant]
  4. CALCIUM GLUCONATE [Concomitant]
  5. VITAMIN E [Concomitant]
  6. MULTI-VITAMIN [Concomitant]
  7. REGLAN [Concomitant]

REACTIONS (3)
  - DRUG INEFFECTIVE [None]
  - VISION BLURRED [None]
  - WEIGHT INCREASED [None]
